FAERS Safety Report 13874672 (Version 1)
Quarter: 2017Q3

REPORT INFORMATION
  Report Type: Spontaneous
  Country: US (occurrence: US)
  Receive Date: 20170816
  Receipt Date: 20170816
  Transmission Date: 20171127
  Serious: No
  Sender: FDA-Public Use
  Company Number: US-ROCHE-1227777

PATIENT
  Sex: Male
  Weight: 74.91 kg

DRUGS (13)
  1. PROCARDIA [Concomitant]
     Active Substance: NIFEDIPINE
     Route: 048
  2. INSPRA [Concomitant]
     Active Substance: EPLERENONE
     Route: 048
  3. EYLEA [Suspect]
     Active Substance: AFLIBERCEPT
     Indication: DIABETIC RETINAL OEDEMA
     Route: 050
  4. LUCENTIS [Suspect]
     Active Substance: RANIBIZUMAB
     Indication: NEOVASCULAR AGE-RELATED MACULAR DEGENERATION
  5. PROTONIX [Concomitant]
     Active Substance: PANTOPRAZOLE SODIUM
     Route: 065
  6. LIPITOR [Concomitant]
     Active Substance: ATORVASTATIN CALCIUM
     Indication: BLOOD CHOLESTEROL
     Route: 048
  7. SANDIMMUNE [Concomitant]
     Active Substance: CYCLOSPORINE
     Route: 065
  8. ANDROGEL [Concomitant]
     Active Substance: TESTOSTERONE
     Dosage: 5 SQUEEZES
     Route: 065
  9. SANDIMMUNE [Concomitant]
     Active Substance: CYCLOSPORINE
     Route: 065
  10. LUCENTIS [Suspect]
     Active Substance: RANIBIZUMAB
     Indication: DIABETIC RETINAL OEDEMA
     Route: 050
     Dates: start: 20080507, end: 20090624
  11. PREDNISONE. [Concomitant]
     Active Substance: PREDNISONE
     Route: 048
  12. FISH OIL [Concomitant]
     Active Substance: FISH OIL
  13. COREG [Concomitant]
     Active Substance: CARVEDILOL
     Route: 065

REACTIONS (1)
  - Therapy non-responder [Not Recovered/Not Resolved]
